FAERS Safety Report 8131757-4 (Version None)
Quarter: 2012Q1

REPORT INFORMATION
  Report Type: 
  Country: None (occurrence: None)
  Receive Date: 20120207
  Receipt Date: 20120124
  Transmission Date: 20120608
  Serious: Yes (Disabling, Other)
  Sender: FDA-Public Use
  Company Number: 2011MA002900

PATIENT
  Sex: Female

DRUGS (18)
  1. EFFEXOR [Concomitant]
  2. NEXIUM [Concomitant]
  3. METOCLOPRAMIDE [Suspect]
     Indication: GASTROINTESTINAL DISORDER
     Dosage: 10 MG;QID;PO
     Route: 048
     Dates: start: 20010625, end: 20011213
  4. CELEXA [Concomitant]
  5. MEPROZINE [Concomitant]
  6. RANITIDINE [Concomitant]
  7. NEURONTIN [Concomitant]
  8. METHYLPREDNISOLONE [Concomitant]
  9. PREVACID [Concomitant]
  10. SEREVENT [Concomitant]
  11. CEPHALEXIN [Concomitant]
  12. HYDROCODONE [Concomitant]
  13. MIACALCIN [Concomitant]
  14. MIRALAX [Concomitant]
  15. AUGMENTIN '125' [Concomitant]
  16. ULTRAM [Concomitant]
  17. VIOXX [Concomitant]
  18. APAP TAB [Concomitant]

REACTIONS (12)
  - PROTRUSION TONGUE [None]
  - EXCESSIVE EYE BLINKING [None]
  - TARDIVE DYSKINESIA [None]
  - ANXIETY [None]
  - PAIN [None]
  - UNEVALUABLE EVENT [None]
  - FAMILY STRESS [None]
  - INCORRECT DRUG ADMINISTRATION DURATION [None]
  - MOVEMENT DISORDER [None]
  - EXTRAPYRAMIDAL DISORDER [None]
  - ECONOMIC PROBLEM [None]
  - LIP DISORDER [None]
